FAERS Safety Report 4463174-2 (Version None)
Quarter: 2004Q3

REPORT INFORMATION
  Report Type: 
  Country: None (occurrence: None)
  Receive Date: 20040930
  Receipt Date: 20040920
  Transmission Date: 20050211
  Serious: Yes (Other)
  Sender: FDA-Public Use
  Company Number: GB-JNJFOC-20040906850

PATIENT
  Sex: Female

DRUGS (3)
  1. RISPERDAL [Suspect]
     Route: 065
  2. RISPERDAL [Suspect]
     Indication: DRUG USE FOR UNKNOWN INDICATION
     Route: 065
  3. QUETIAPINE [Interacting]
     Indication: DRUG USE FOR UNKNOWN INDICATION
     Route: 049

REACTIONS (6)
  - DRUG INTERACTION [None]
  - DYSKINESIA [None]
  - EATING DISORDER [None]
  - EMOTIONAL DISTRESS [None]
  - PARANOIA [None]
  - TREMOR [None]
